FAERS Safety Report 4434449-8 (Version None)
Quarter: 2004Q3

REPORT INFORMATION
  Report Type: 
  Country: None (occurrence: None)
  Receive Date: 20040726
  Receipt Date: 20040310
  Transmission Date: 20050211
  Serious: No
  Sender: FDA-Public Use
  Company Number: USA040259322

PATIENT
  Age: 55 Year
  Sex: Female
  Weight: 61 kg

DRUGS (4)
  1. FORTEO [Suspect]
     Indication: OSTEOPOROSIS
     Dosage: 20 UG/DAY
     Dates: start: 20031001
  2. CALCIUM [Concomitant]
  3. VITAMIN D [Concomitant]
  4. CALCIUM [Concomitant]

REACTIONS (2)
  - DIFFICULTY IN WALKING [None]
  - RHEUMATOID ARTHRITIS [None]
